FAERS Safety Report 7349796-X (Version None)
Quarter: 2011Q1

REPORT INFORMATION
  Report Type: 
  Country: None (occurrence: None)
  Receive Date: 20110222
  Receipt Date: 20100203
  Transmission Date: 20110831
  Serious: Yes (Other)
  Sender: FDA-Public Use
  Company Number: 2010BH002207

PATIENT
  Age: 44 Year
  Sex: Male
  Weight: 165.9 kg

DRUGS (5)
  1. LIDOCAINE [Concomitant]
  2. ARALAST NP [Suspect]
     Indication: ALPHA-1 ANTI-TRYPSIN DEFICIENCY
     Dosage: 60 MG/KG; EVERY WEEK; IV, 60 MG/KG; EVERY WEEK; IV
     Route: 042
     Dates: start: 20080805
  3. ARALAST NP [Suspect]
     Indication: ALPHA-1 ANTI-TRYPSIN DEFICIENCY
     Dosage: 60 MG/KG; EVERY WEEK; IV, 60 MG/KG; EVERY WEEK; IV
     Route: 042
     Dates: start: 20100128, end: 20100128
  4. NORMAL SALINE [Concomitant]
  5. HEPARIN [Concomitant]

REACTIONS (1)
  - CHILLS [None]
